FAERS Safety Report 18730444 (Version 2)
Quarter: 2021Q1

REPORT INFORMATION
  Report Type: Spontaneous
  Country: US (occurrence: US)
  Receive Date: 20210112
  Receipt Date: 20210119
  Transmission Date: 20210419
  Serious: Yes (Other)
  Sender: FDA-Public Use
  Company Number: US-PFIZER INC-2021000160

PATIENT
  Age: 65 Year
  Sex: Female

DRUGS (2)
  1. VANCOMYCIN HCL [Suspect]
     Active Substance: VANCOMYCIN HYDROCHLORIDE
     Indication: DEVICE RELATED INFECTION
     Dosage: 12 G (ANTIBIOTIC CEMENT SPACER)
  2. TOBRAMYCIN. [Suspect]
     Active Substance: TOBRAMYCIN
     Indication: DEVICE RELATED INFECTION
     Dosage: 15 G (ANTIBIOTIC CEMENT SPACER)

REACTIONS (5)
  - Off label use [Unknown]
  - Antibiotic level above therapeutic [Recovered/Resolved]
  - Anuria [Recovered/Resolved]
  - Product use issue [Unknown]
  - Renal failure [Recovered/Resolved]
